FAERS Safety Report 20568110 (Version 1)
Quarter: 2022Q1

REPORT INFORMATION
  Report Type: Spontaneous
  Country: US (occurrence: US)
  Receive Date: 20220308
  Receipt Date: 20220308
  Transmission Date: 20220423
  Serious: Yes (Other)
  Sender: FDA-Public Use
  Company Number: US-PURDUE-USA-2020-0215066

PATIENT
  Sex: Male

DRUGS (4)
  1. OXYCODONE HYDROCHLORIDE [Suspect]
     Active Substance: OXYCODONE HYDROCHLORIDE
     Indication: Fall
     Dosage: 90 PILLS A MONTH
     Route: 048
     Dates: start: 1995, end: 201806
  2. OXYCODONE HYDROCHLORIDE [Suspect]
     Active Substance: OXYCODONE HYDROCHLORIDE
     Indication: Neck surgery
  3. HYDROCODONE BITARTRATE [Suspect]
     Active Substance: HYDROCODONE BITARTRATE
     Indication: Fall
     Dosage: 90 PILLS A MONTH
     Route: 065
     Dates: start: 1995, end: 201806
  4. HYDROCODONE BITARTRATE [Suspect]
     Active Substance: HYDROCODONE BITARTRATE
     Indication: Neck surgery

REACTIONS (1)
  - Drug dependence [Unknown]
